FAERS Safety Report 6825576-6 (Version None)
Quarter: 2010Q3

REPORT INFORMATION
  Report Type: 
  Country: None (occurrence: None)
  Receive Date: 20100708
  Receipt Date: 20070209
  Transmission Date: 20110219
  Serious: Yes (Other)
  Sender: FDA-Public Use
  Company Number: US-PFIZER INC-2006156101

PATIENT
  Sex: Female
  Weight: 47.2 kg

DRUGS (17)
  1. CHANTIX [Suspect]
     Indication: SMOKING CESSATION THERAPY
     Dates: start: 20061001
  2. POTASSIUM CHLORIDE [Concomitant]
  3. GUAIFENESIN DM [Concomitant]
  4. ACTONEL [Concomitant]
  5. SPIRIVA [Concomitant]
  6. IPRATROPIUM BROMIDE AND ALBUTEROL SULFATE [Concomitant]
  7. VITAMIN C [Concomitant]
  8. VITAMIN D [Concomitant]
  9. ZINC [Concomitant]
  10. VITAMIN B COMPLEX CAP [Concomitant]
  11. CHONDROITIN/GLUCOSAMINE [Concomitant]
  12. ZOLOFT [Concomitant]
  13. LUTEIN [Concomitant]
  14. VITAMIN E [Concomitant]
  15. KLONOPIN [Concomitant]
  16. REQUIP [Concomitant]
  17. PREDNISONE [Concomitant]

REACTIONS (3)
  - BLOOD POTASSIUM DECREASED [None]
  - INSOMNIA [None]
  - MUSCLE SPASMS [None]
